FAERS Safety Report 15118843 (Version 1)
Quarter: 2018Q3

REPORT INFORMATION
  Report Type: Other
  Country: FI (occurrence: FI)
  Receive Date: 20180709
  Receipt Date: 20180709
  Transmission Date: 20181010
  Serious: Yes (Hospitalization)
  Sender: FDA-Public Use
  Company Number: FI-KRKA, D.D., NOVO MESTO-2051551

PATIENT
  Age: 87 Year
  Sex: Female

DRUGS (7)
  1. ENALAPRIL MALEATE. [Suspect]
     Active Substance: ENALAPRIL MALEATE
  2. DICLOFENAC SODIUM. [Suspect]
     Active Substance: DICLOFENAC SODIUM
     Route: 030
  3. POTASSIUM CHLORIDE. [Suspect]
     Active Substance: POTASSIUM CHLORIDE
  4. METFORMIN HYDROCHLORIDE. [Suspect]
     Active Substance: METFORMIN HYDROCHLORIDE
  5. FUROSEMIDE. [Suspect]
     Active Substance: FUROSEMIDE
  6. HYDROCHLOROTHIAZIDE. [Suspect]
     Active Substance: HYDROCHLOROTHIAZIDE
  7. ORPHENADRINE CITRATE. [Suspect]
     Active Substance: ORPHENADRINE CITRATE

REACTIONS (7)
  - Acute kidney injury [Not Recovered/Not Resolved]
  - Heart rate abnormal [Recovered/Resolved]
  - Dysarthria [Recovered/Resolved]
  - Hyperkalaemia [Recovered/Resolved]
  - Lactic acidosis [Recovered/Resolved]
  - Electrocardiogram abnormal [Recovered/Resolved]
  - Muscular weakness [Recovered/Resolved]
